FAERS Safety Report 21896418 (Version 1)
Quarter: 2023Q1

REPORT INFORMATION
  Report Type: Spontaneous
  Country: BR (occurrence: BR)
  Receive Date: 20230123
  Receipt Date: 20230123
  Transmission Date: 20230418
  Serious: Yes (Other)
  Sender: FDA-Public Use
  Company Number: BR-002147023-NVSC2023BR012594

PATIENT
  Age: 67 Year
  Sex: Female

DRUGS (3)
  1. TASIGNA [Suspect]
     Active Substance: NILOTINIB
     Indication: Chronic myeloid leukaemia
     Dosage: 800 MG, QD
     Route: 065
     Dates: start: 20091223
  2. TASIGNA [Suspect]
     Active Substance: NILOTINIB
     Dosage: UNK (50 PERCENT OF THE DOSE)
     Route: 065
     Dates: end: 20221030
  3. TASIGNA [Suspect]
     Active Substance: NILOTINIB
     Dosage: UNK
     Route: 065
     Dates: start: 202301

REACTIONS (7)
  - Acute myocardial infarction [Unknown]
  - Chronic myeloid leukaemia recurrent [Unknown]
  - Cardiac failure [Unknown]
  - Blood glucose increased [Unknown]
  - C-reactive protein abnormal [Unknown]
  - Drug intolerance [Unknown]
  - Drug ineffective [Unknown]

NARRATIVE: CASE EVENT DATE: 20221001
